FAERS Safety Report 7917759-9 (Version None)
Quarter: 2011Q4

REPORT INFORMATION
  Report Type: 
  Country: None (occurrence: None)
  Receive Date: 20111116
  Receipt Date: 20111102
  Transmission Date: 20120403
  Serious: Yes (Hospitalization)
  Sender: FDA-Public Use
  Company Number: FR-JNJFOC-20111104658

PATIENT
  Age: 60 Year
  Sex: Female

DRUGS (3)
  1. AUGMENTIN [Suspect]
     Indication: SALIVARY GLAND CALCULUS
     Route: 048
     Dates: start: 20111005, end: 20111007
  2. ACETAMINOPHEN AND TRAMADOL HCL [Suspect]
     Indication: PAIN
     Dosage: 37.5/325 MG, 5 TABLETS DAILY
     Route: 048
     Dates: start: 20111005, end: 20111005
  3. AMARYL [Concomitant]
     Route: 065
     Dates: start: 20090801

REACTIONS (5)
  - RASH MORBILLIFORM [None]
  - NAUSEA [None]
  - CYTOLYTIC HEPATITIS [None]
  - RENAL FAILURE [None]
  - PYREXIA [None]
